FAERS Safety Report 5120810-5 (Version None)
Quarter: 2006Q4

REPORT INFORMATION
  Report Type: 
  Country: None (occurrence: None)
  Receive Date: 20061005
  Receipt Date: 20060929
  Transmission Date: 20070319
  Serious: Yes (Life-Threatening)
  Sender: FDA-Public Use
  Company Number: PHRM2006FR02687

PATIENT
  Age: 68 Year
  Sex: Female

DRUGS (6)
  1. FLUVOXAMINE MALEATE [Concomitant]
     Dosage: 2 TABLETS DAILY
     Route: 048
  2. TAREG [Suspect]
     Dosage: 160 MG, QD
     Route: 048
  3. TAHOR [Concomitant]
     Route: 048
     Dates: start: 20051015
  4. ACTONEL [Concomitant]
     Dosage: 35 MG, QW
     Route: 048
  5. PRETERAX [Suspect]
     Dosage: 1 TABLET DAILY
     Route: 048
     Dates: start: 20051015, end: 20060801
  6. ASPIRIN [Concomitant]
     Route: 048
     Dates: start: 20051015

REACTIONS (11)
  - BLOOD CREATININE INCREASED [None]
  - BLOOD UREA INCREASED [None]
  - C-REACTIVE PROTEIN INCREASED [None]
  - DEHYDRATION [None]
  - HAEMOGLOBIN DECREASED [None]
  - HYPERTHERMIA [None]
  - HYPOTENSION [None]
  - NEUTROPHIL COUNT INCREASED [None]
  - OXYGEN SATURATION DECREASED [None]
  - RENAL FAILURE ACUTE [None]
  - SEPTIC SHOCK [None]
